FAERS Safety Report 14698807 (Version 1)
Quarter: 2018Q1

REPORT INFORMATION
  Report Type: Spontaneous
  Country: US (occurrence: US)
  Receive Date: 20180330
  Receipt Date: 20180330
  Transmission Date: 20180509
  Serious: No
  Sender: FDA-Public Use
  Company Number: US-JNJFOC-20180321413

PATIENT
  Sex: Female
  Weight: 70.31 kg

DRUGS (5)
  1. RISEDRONATE [Concomitant]
     Active Substance: RISEDRONATE SODIUM
     Route: 065
  2. ASCORBIC ACID. [Concomitant]
     Active Substance: ASCORBIC ACID
     Route: 065
  3. ISONIAZID. [Concomitant]
     Active Substance: ISONIAZID
     Route: 065
  4. SIMPONI [Suspect]
     Active Substance: GOLIMUMAB
     Indication: RHEUMATOID ARTHRITIS
     Route: 058
  5. LUNESTA [Concomitant]
     Active Substance: ESZOPICLONE
     Route: 065

REACTIONS (2)
  - Drug dose omission [Unknown]
  - Fatigue [Unknown]
